FAERS Safety Report 7996818-9 (Version None)
Quarter: 2011Q4

REPORT INFORMATION
  Report Type: 
  Country: None (occurrence: None)
  Receive Date: 20111221
  Receipt Date: 20111213
  Transmission Date: 20120403
  Serious: Yes (Other)
  Sender: FDA-Public Use
  Company Number: DE-UCBSA-047618

PATIENT
  Age: 27 Year
  Sex: Female

DRUGS (2)
  1. PROMETHAZINE HCL [Suspect]
     Dosage: 25 MG 4 TABLETS AT MOST TOTAL AMOUNT 100 MG
  2. KEPPRA [Suspect]
     Dosage: TOTAL AMOUNT 20,000 MG

REACTIONS (2)
  - SOPOR [None]
  - SUICIDE ATTEMPT [None]
